FAERS Safety Report 12934055 (Version 2)
Quarter: 2016Q4

REPORT INFORMATION
  Report Type: Report from Study
  Country: JP (occurrence: JP)
  Receive Date: 20161111
  Receipt Date: 20161224
  Transmission Date: 20170207
  Serious: Yes (Hospitalization)
  Sender: FDA-Public Use
  Company Number: JP-UCBSA-2016042121

PATIENT
  Age: 11 Year
  Sex: Male
  Weight: 36 kg

DRUGS (24)
  1. GANCICLOVIR. [Concomitant]
     Active Substance: GANCICLOVIR
  2. E KEPPRA [Suspect]
     Active Substance: LEVETIRACETAM
     Indication: TONIC CONVULSION
     Dosage: 500 MG, 2X/DAY (BID)
     Route: 048
     Dates: start: 20160826
  3. VICCLOX [Concomitant]
     Active Substance: ACYCLOVIR SODIUM
     Indication: PRODUCT USED FOR UNKNOWN INDICATION
     Dosage: 170 MG, ONCE DAILY (QD)
     Route: 042
     Dates: start: 20160804, end: 20160826
  4. DALTEPARIN SODIUM [Concomitant]
     Active Substance: DALTEPARIN SODIUM
     Indication: PRODUCT USED FOR UNKNOWN INDICATION
     Dosage: 2700 IU, ONCE DAILY (QD)
     Route: 042
     Dates: start: 20160823, end: 20160830
  5. MIDAZOLAM [Concomitant]
     Active Substance: MIDAZOLAM\MIDAZOLAM HYDROCHLORIDE
     Indication: TONIC CONVULSION
     Dosage: 24 MG, ONCE DAILY (QD)
     Route: 041
     Dates: start: 20160814, end: 20160823
  6. POLARAMINE [Concomitant]
     Active Substance: DEXCHLORPHENIRAMINE MALEATE
     Indication: PRODUCT USED FOR UNKNOWN INDICATION
     Dosage: 3 MG, ONCE DAILY (QD)
     Route: 042
     Dates: start: 20160727, end: 20160822
  7. LASIX [Concomitant]
     Active Substance: FUROSEMIDE
     Indication: PRODUCT USED FOR UNKNOWN INDICATION
     Dosage: 20 MG, ONCE DAILY (QD)
     Route: 042
     Dates: start: 20160814, end: 20160829
  8. LEVETIRACETAM. [Suspect]
     Active Substance: LEVETIRACETAM
     Dosage: 500 MG, 2X/DAY (BID)
     Route: 042
     Dates: start: 20160823, end: 20160826
  9. MANNITOL S [Concomitant]
     Indication: PRODUCT USED FOR UNKNOWN INDICATION
     Dosage: 50 ML, 3X/DAY (TID)
     Route: 042
     Dates: start: 20160814, end: 20160831
  10. PREDONINE [Concomitant]
     Active Substance: PREDNISOLONE\PREDNISOLONE ACETATE\PREDNISOLONE SODIUM SUCCINATE
     Indication: PRODUCT USED FOR UNKNOWN INDICATION
     Dosage: 10 MG, ONCE DAILY (QD)
     Route: 042
     Dates: start: 20160814, end: 20160824
  11. DEXART [Concomitant]
     Active Substance: DEXAMETHASONE SODIUM PHOSPHATE
     Indication: PRODUCT USED FOR UNKNOWN INDICATION
     Dosage: 1.5 ML DAILY
     Route: 042
     Dates: start: 20160823, end: 20160830
  12. MEROPENEM. [Concomitant]
     Active Substance: MEROPENEM
     Indication: PRODUCT USED FOR UNKNOWN INDICATION
     Dosage: 1000 MG, ONCE DAILY (QD)
     Route: 042
     Dates: start: 20160817, end: 20160911
  13. VANCOMYCIN [Concomitant]
     Active Substance: VANCOMYCIN
     Indication: PRODUCT USED FOR UNKNOWN INDICATION
     Dosage: 375 MG, 2X/DAY (BID)
     Route: 042
     Dates: start: 20160818, end: 20160914
  14. OMEPRAZOLE. [Concomitant]
     Active Substance: OMEPRAZOLE
     Indication: PRODUCT USED FOR UNKNOWN INDICATION
     Dosage: 5 MG, 2X/DAY (BID)
     Route: 042
     Dates: start: 20160815, end: 20160820
  15. FUNGUARD [Concomitant]
     Active Substance: MICAFUNGIN SODIUM
     Indication: PRODUCT USED FOR UNKNOWN INDICATION
     Dosage: 100 MG, ONCE DAILY (QD)
     Route: 042
     Dates: start: 20160722, end: 20160819
  16. CARBAZOCHROME [Concomitant]
     Active Substance: CARBAZOCHROME
     Indication: PRODUCT USED FOR UNKNOWN INDICATION
     Dosage: 48 MG, ONCE DAILY (QD)
     Route: 041
     Dates: start: 20160811, end: 20160822
  17. PRECEDEX [Concomitant]
     Active Substance: DEXMEDETOMIDINE HYDROCHLORIDE
     Indication: SEDATIVE THERAPY
     Dosage: 174 ?G, ONCE DAILY (QD)
     Route: 041
     Dates: start: 20160815, end: 20160901
  18. TATHION [Concomitant]
     Active Substance: GLUTATHIONE
     Indication: PRODUCT USED FOR UNKNOWN INDICATION
     Dosage: 100 MG, ONCE DAILY (QD)
     Route: 042
     Dates: start: 20160817, end: 20160820
  19. RECOMODULIN [Concomitant]
     Active Substance: THROMBOMODULIN ALFA
     Indication: PRODUCT USED FOR UNKNOWN INDICATION
     Dosage: 12800 IU, ONCE DAILY (QD)
     Route: 042
     Dates: start: 20160817, end: 20160822
  20. VFEND [Concomitant]
     Active Substance: VORICONAZOLE
     Indication: PRODUCT USED FOR UNKNOWN INDICATION
     Dosage: 140 MG, 2X/DAY (BID)
     Route: 042
     Dates: start: 20160819, end: 20160907
  21. LEVETIRACETAM. [Suspect]
     Active Substance: LEVETIRACETAM
     Indication: TONIC CONVULSION
     Dosage: 360 MG, 2X/DAY (BID)
     Route: 042
     Dates: start: 20160818, end: 201608
  22. INTRALIPOS [Concomitant]
     Active Substance: SOYBEAN OIL
     Indication: PRODUCT USED FOR UNKNOWN INDICATION
     Dosage: 360 ML, ONCE DAILY (QD)
     Route: 041
     Dates: start: 20160819, end: 20160827
  23. NEO-MINOPHAGEN C [Concomitant]
     Active Substance: AMMONIUM GLYCYRRHIZATE
     Indication: PRODUCT USED FOR UNKNOWN INDICATION
     Dosage: 20 ML, ONCE DAILY (QD)
     Route: 042
     Dates: start: 20160801, end: 20160923
  24. ULTIVA [Concomitant]
     Active Substance: REMIFENTANIL HYDROCHLORIDE
     Indication: SEDATIVE THERAPY
     Dosage: 2683 ?G, ONCE DAILY (QD)
     Route: 041
     Dates: start: 20160815, end: 20160901

REACTIONS (3)
  - Cystitis haemorrhagic [Recovered/Resolved]
  - Pneumonia cytomegaloviral [Recovered/Resolved]
  - Device related infection [Recovered/Resolved]

NARRATIVE: CASE EVENT DATE: 20160908
